FAERS Safety Report 19473926 (Version 1)
Quarter: 2021Q2

REPORT INFORMATION
  Report Type: Report from Study
  Country: IT (occurrence: IT)
  Receive Date: 20210629
  Receipt Date: 20210629
  Transmission Date: 20210717
  Serious: Yes (Other)
  Sender: FDA-Public Use
  Company Number: IT-PFIZER INC-2021588586

PATIENT
  Age: 68 Year
  Sex: Male

DRUGS (1)
  1. BASSADO [Suspect]
     Active Substance: DOXYCYCLINE
     Indication: ARTHROPOD BITE
     Dosage: UNK

REACTIONS (3)
  - Dysphonia [Recovering/Resolving]
  - Swelling face [Recovering/Resolving]
  - Lip swelling [Recovering/Resolving]

NARRATIVE: CASE EVENT DATE: 20210511
